FAERS Safety Report 5990521-2 (Version None)
Quarter: 2008Q4

REPORT INFORMATION
  Report Type: 
  Country: None (occurrence: None)
  Receive Date: 20081211
  Receipt Date: 20081125
  Transmission Date: 20090506
  Serious: Yes (Hospitalization)
  Sender: FDA-Public Use
  Company Number: DE-PFIZER INC-2008100153

PATIENT

DRUGS (10)
  1. BLINDED *PLACEBO [Suspect]
     Indication: CARDIAC FAILURE
     Dosage: *BLINDED THERAPY BID DAILY TDD:BLINDED T
     Route: 048
     Dates: start: 20070621
  2. BLINDED EPLERENONE [Suspect]
     Indication: CARDIAC FAILURE
     Dosage: *BLINDED THERAPY BID DAILY TDD:BLINDED T
     Route: 048
     Dates: start: 20070621
  3. GLIBENCLAMIDE [Concomitant]
     Dosage: UNK
     Route: 048
     Dates: start: 20070501
  4. RAMIPRIL [Concomitant]
     Dosage: UNK
     Route: 048
     Dates: start: 20070501
  5. METOPROLOL [Concomitant]
     Dosage: UNK
     Route: 048
     Dates: start: 20070501
  6. ALLOPURINOL [Concomitant]
     Dosage: UNK
     Route: 048
     Dates: start: 20070501
  7. DIGITOXIN [Concomitant]
     Dosage: UNK
     Route: 048
     Dates: start: 20070501
  8. PHENPROCOUMON [Concomitant]
     Dosage: UNK
     Route: 048
     Dates: start: 20070501
  9. COLCHICINE [Concomitant]
     Dosage: UNK
     Route: 048
     Dates: start: 20071101
  10. EXENATIDE [Concomitant]
     Route: 058
     Dates: start: 20070925

REACTIONS (1)
  - BACK PAIN [None]
